FAERS Safety Report 24628686 (Version 7)
Quarter: 2025Q2

REPORT INFORMATION
  Report Type: Spontaneous
  Country: JP (occurrence: JP)
  Receive Date: 20241117
  Receipt Date: 20250404
  Transmission Date: 20250717
  Serious: Yes (Death, Hospitalization, Other)
  Sender: ASTELLAS
  Company Number: JP-ASTELLAS-2024-AER-017285

PATIENT
  Age: 75 Year
  Sex: Female
  Weight: 87 kg

DRUGS (3)
  1. PADCEV [Suspect]
     Active Substance: ENFORTUMAB VEDOTIN-EJFV
     Indication: Ureteric cancer
     Route: 042
     Dates: start: 20241101, end: 20241108
  2. KEYTRUDA for I.V. infusion [Concomitant]
     Indication: Transitional cell carcinoma
     Route: 042
     Dates: start: 20241101, end: 20241101
  3. RINDERON [Concomitant]
     Indication: Pruritus
     Route: 065

REACTIONS (4)
  - Febrile neutropenia [Fatal]
  - Toxic epidermal necrolysis [Fatal]
  - White blood cell count decreased [Not Recovered/Not Resolved]
  - Jaundice [Not Recovered/Not Resolved]

NARRATIVE: CASE EVENT DATE: 20241106
